FAERS Safety Report 11220246 (Version 1)
Quarter: 2015Q2

REPORT INFORMATION
  Report Type: Report from Study
  Country: US (occurrence: US)
  Receive Date: 20150625
  Receipt Date: 20150625
  Transmission Date: 20150821
  Serious: No
  Sender: FDA-Public Use
  Company Number: US-EXELIXIS-CABO-14004186

PATIENT
  Sex: Female

DRUGS (21)
  1. CABOZANTINIB [Suspect]
     Active Substance: CABOZANTINIB
     Dosage: 40 MG, QD
     Route: 048
     Dates: start: 20140417, end: 2014
  2. SPIRONOLACTONE. [Concomitant]
     Active Substance: SPIRONOLACTONE
  3. LEVOTHYROXINE [Concomitant]
     Active Substance: LEVOTHYROXINE
  4. TRAVATAN [Concomitant]
     Active Substance: TRAVOPROST
  5. ATENOLOL. [Concomitant]
     Active Substance: ATENOLOL
  6. CALCIUM [Concomitant]
     Active Substance: CALCIUM
  7. VITAMIN C [Concomitant]
     Active Substance: ASCORBIC ACID
  8. CABOZANTINIB [Suspect]
     Active Substance: CABOZANTINIB
     Indication: BREAST CANCER FEMALE
     Dosage: 20 MG, QD
     Route: 048
     Dates: start: 20140321, end: 20140408
  9. OCUVITE [Concomitant]
     Active Substance: VITAMINS
  10. CABOZANTINIB [Suspect]
     Active Substance: CABOZANTINIB
     Dosage: 20 MG, QD
     Route: 048
     Dates: start: 201410, end: 2014
  11. GLUCOSAMINE [Concomitant]
     Active Substance: GLUCOSAMINE
  12. POTASSIUM [Concomitant]
     Active Substance: POTASSIUM
  13. LASIX [Concomitant]
     Active Substance: FUROSEMIDE
  14. METOPROLOL [Concomitant]
     Active Substance: METOPROLOL
  15. CHONDROITIN [Concomitant]
     Active Substance: CHONDROITIN
  16. COQ10 [Concomitant]
     Active Substance: UBIDECARENONE
  17. CABOZANTINIB [Suspect]
     Active Substance: CABOZANTINIB
     Dosage: ALTERNATING 20 MG/40 MG QOD
     Route: 048
     Dates: start: 20141119
  18. METFORMIN [Concomitant]
     Active Substance: METFORMIN HYDROCHLORIDE
  19. DIGOXIN. [Concomitant]
     Active Substance: DIGOXIN
  20. ASPIRIN. [Concomitant]
     Active Substance: ASPIRIN
  21. FUROSEMIDE. [Concomitant]
     Active Substance: FUROSEMIDE

REACTIONS (8)
  - Dry mouth [Unknown]
  - Dysphagia [Recovered/Resolved]
  - Pain [Unknown]
  - Dyspnoea [Unknown]
  - Headache [Unknown]
  - Bone pain [Unknown]
  - Pain in extremity [Unknown]
  - Off label use [Unknown]

NARRATIVE: CASE EVENT DATE: 2014
